FAERS Safety Report 13781511 (Version 1)
Quarter: 2017Q3

REPORT INFORMATION
  Report Type: Spontaneous
  Country: US (occurrence: US)
  Receive Date: 20170724
  Receipt Date: 20170724
  Transmission Date: 20171127
  Serious: No
  Sender: FDA-Public Use
  Company Number: None

PATIENT
  Age: 59 Year
  Sex: Female
  Weight: 102.6 kg

DRUGS (1)
  1. MEPOLIZUMAB [Suspect]
     Active Substance: MEPOLIZUMAB
     Indication: ASTHMA
     Dosage: ?          OTHER DOSE:MG;OTHER FREQUENCY:EVERY 4 WEEKS;?
     Route: 058
     Dates: start: 20170428, end: 20170630

REACTIONS (1)
  - Granuloma annulare [None]

NARRATIVE: CASE EVENT DATE: 20170713
